FAERS Safety Report 13464270 (Version 1)
Quarter: 2017Q2

REPORT INFORMATION
  Report Type: Spontaneous
  Country: US (occurrence: US)
  Receive Date: 20170420
  Receipt Date: 20170420
  Transmission Date: 20170830
  Serious: Yes (Other)
  Sender: FDA-Public Use
  Company Number: US-ROCHE-727327

PATIENT
  Age: 23 Year
  Sex: Female
  Weight: 56.7 kg

DRUGS (4)
  1. ACCUTANE [Suspect]
     Active Substance: ISOTRETINOIN
     Indication: ACNE
     Route: 065
     Dates: start: 2002, end: 2003
  2. CLARAVIS [Suspect]
     Active Substance: ISOTRETINOIN
     Indication: ACNE
     Route: 065
  3. ESTROSTEP [Concomitant]
     Active Substance: ETHINYL ESTRADIOL\NORETHINDRONE ACETATE
     Indication: CONTRACEPTION
     Route: 065
  4. ACCUTANE [Suspect]
     Active Substance: ISOTRETINOIN
     Route: 065
     Dates: start: 20030512, end: 200310

REACTIONS (9)
  - Gastrointestinal injury [Unknown]
  - Lip dry [Recovering/Resolving]
  - Rash [Unknown]
  - Inflammatory bowel disease [Unknown]
  - Dry skin [Recovering/Resolving]
  - Skin exfoliation [Unknown]
  - Colitis ulcerative [Unknown]
  - Xerosis [Unknown]
  - Lip discolouration [Recovered/Resolved]

NARRATIVE: CASE EVENT DATE: 2003
